FAERS Safety Report 4535369-0 (Version None)
Quarter: 2004Q4

REPORT INFORMATION
  Report Type: 
  Country: None (occurrence: None)
  Receive Date: 20041222
  Receipt Date: 20041104
  Transmission Date: 20050328
  Serious: Yes (Hospitalization, Other)
  Sender: FDA-Public Use
  Company Number: JP-ABBOTT-04P-087-0282322-00

PATIENT
  Sex: Female

DRUGS (5)
  1. SEVORANE LIQUID FOR INHALATION [Suspect]
     Indication: ANAESTHESIA
     Route: 055
     Dates: start: 19960514, end: 19960514
  2. VECURONIUM BROMIDE [Concomitant]
     Indication: MUSCLE RELAXANT THERAPY
     Route: 042
     Dates: start: 19960514, end: 19960514
  3. METHYLPREDNISOLONE SODIUM SUCCINATE [Concomitant]
     Indication: ADRENOCORTICAL STEROID THERAPY
     Route: 042
     Dates: start: 19960514, end: 19960514
  4. ATROPINE SULFATE [Concomitant]
     Indication: ANAESTHESIA REVERSAL
     Route: 042
     Dates: start: 19960514, end: 19960514
  5. NEOSTIGMINE [Concomitant]
     Indication: ANAESTHESIA REVERSAL
     Route: 042
     Dates: start: 19960514, end: 19960514

REACTIONS (2)
  - HYPOVENTILATION [None]
  - OBSTRUCTIVE AIRWAYS DISORDER [None]
